FAERS Safety Report 11528882 (Version 1)
Quarter: 2015Q3

REPORT INFORMATION
  Report Type: Spontaneous
  Country: US (occurrence: US)
  Receive Date: 20150921
  Receipt Date: 20150921
  Transmission Date: 20151125
  Serious: No
  Sender: FDA-Public Use
  Company Number: US-PFIZER INC-2015311020

PATIENT
  Age: 60 Year
  Sex: Female
  Weight: 104 kg

DRUGS (1)
  1. CORTEF [Suspect]
     Active Substance: HYDROCORTISONE
     Dosage: UNK
     Route: 060
     Dates: end: 201502

REACTIONS (2)
  - Malabsorption [Unknown]
  - Drug ineffective [Unknown]
